FAERS Safety Report 11036082 (Version 2)
Quarter: 2015Q2

REPORT INFORMATION
  Report Type: Spontaneous
  Country: US (occurrence: US)
  Receive Date: 20150415
  Receipt Date: 20150525
  Transmission Date: 20150821
  Serious: No
  Sender: FDA-Public Use
  Company Number: US-JNJFOC-20150121864

PATIENT
  Age: 76 Year
  Sex: Male
  Weight: 70.76 kg

DRUGS (6)
  1. DIGOXIN. [Concomitant]
     Active Substance: DIGOXIN
     Route: 065
  2. FISH OIL [Concomitant]
     Active Substance: FISH OIL
     Dosage: 1 IN MORNING AND 1 IN EVENING
     Route: 065
  3. ATORVASTATIN [Concomitant]
     Active Substance: ATORVASTATIN
     Route: 065
  4. XARELTO [Suspect]
     Active Substance: RIVAROXABAN
     Indication: CEREBROVASCULAR ACCIDENT PROPHYLAXIS
     Route: 048
     Dates: start: 20150126
  5. XARELTO [Suspect]
     Active Substance: RIVAROXABAN
     Indication: ATRIAL FIBRILLATION
     Route: 048
     Dates: start: 20150126
  6. QUINAPRIL [Concomitant]
     Active Substance: QUINAPRIL\QUINAPRIL HYDROCHLORIDE
     Route: 065

REACTIONS (3)
  - Stress [Unknown]
  - Inappropriate schedule of drug administration [Not Recovered/Not Resolved]
  - Headache [Unknown]

NARRATIVE: CASE EVENT DATE: 201501
